FAERS Safety Report 9779554 (Version 4)
Quarter: 2014Q2

REPORT INFORMATION
  Report Type: Spontaneous
  Country: BR (occurrence: BR)
  Receive Date: 20131223
  Receipt Date: 20140527
  Transmission Date: 20141212
  Serious: Yes (Other)
  Sender: FDA-Public Use
  Company Number: BR-PFIZER INC-2013364616

PATIENT
  Age: 69 Year
  Sex: Female
  Weight: 69 kg

DRUGS (1)
  1. LIPITOR [Suspect]
     Indication: DYSLIPIDAEMIA
     Dosage: 20 MG, 1X/DAY
     Route: 048
     Dates: start: 20130927, end: 201312

REACTIONS (13)
  - Blood creatine phosphokinase increased [Unknown]
  - Muscle atrophy [Unknown]
  - Balance disorder [Not Recovered/Not Resolved]
  - Asthenia [Not Recovered/Not Resolved]
  - Gait disturbance [Not Recovered/Not Resolved]
  - Aspartate aminotransferase increased [Recovering/Resolving]
  - Myalgia [Recovering/Resolving]
  - Muscular weakness [Recovered/Resolved]
  - Weight decreased [Unknown]
  - Alanine aminotransferase increased [Recovering/Resolving]
  - Dizziness [Unknown]
  - Fatigue [Unknown]
  - Headache [Unknown]
